FAERS Safety Report 7170297-6 (Version None)
Quarter: 2010Q4

REPORT INFORMATION
  Report Type: 
  Country: None (occurrence: None)
  Receive Date: 20101217
  Receipt Date: 20101119
  Transmission Date: 20110411
  Serious: No
  Sender: FDA-Public Use
  Company Number: A0885440A

PATIENT
  Age: 68 Year
  Sex: Male
  Weight: 73.2 kg

DRUGS (10)
  1. LAMICTAL [Suspect]
     Dosage: 25MG SINGLE DOSE
     Route: 048
     Dates: start: 20101004, end: 20101004
  2. TRILEPTAL [Concomitant]
  3. LEVOTHYROXINE [Concomitant]
  4. FELODIPINE [Concomitant]
  5. CARVEDILOL [Concomitant]
  6. BENICAR [Concomitant]
  7. LIPITOR [Concomitant]
  8. FISH OIL [Concomitant]
  9. ASPIRIN [Concomitant]
  10. VITAMIN D [Concomitant]

REACTIONS (6)
  - ERYTHEMA [None]
  - PRURITUS [None]
  - PYREXIA [None]
  - RASH [None]
  - RASH MACULAR [None]
  - SWELLING [None]
